FAERS Safety Report 15107769 (Version 1)
Quarter: 2018Q3

REPORT INFORMATION
  Report Type: Spontaneous
  Country: US (occurrence: US)
  Receive Date: 20180704
  Receipt Date: 20180704
  Transmission Date: 20181010
  Serious: No
  Sender: FDA-Public Use
  Company Number: US-ANTARES PHARMA, INC.-2018-SPO-SU-0403

PATIENT
  Age: 48 Year
  Sex: Female

DRUGS (2)
  1. SUMATRIPTAN. [Suspect]
     Active Substance: SUMATRIPTAN
     Indication: MIGRAINE
     Dosage: 6 MG/0.5ML, PRN
     Route: 058
  2. PILLS [Concomitant]
     Active Substance: UNSPECIFIED INGREDIENT

REACTIONS (4)
  - Pain [Unknown]
  - Device deployment issue [Unknown]
  - Injection site bruising [Unknown]
  - Device issue [Unknown]

NARRATIVE: CASE EVENT DATE: 20180402
